FAERS Safety Report 8780233 (Version 1)
Quarter: 2012Q4

REPORT INFORMATION
  Report Type: Spontaneous
  Country: US (occurrence: None)
  Receive Date: 20120904
  Receipt Date: 20120904
  Transmission Date: 20130627
  Serious: Yes (Life-Threatening)
  Sender: FDA-Public Use
  Company Number: None

PATIENT
  Age: 65 Year
  Sex: Male
  Weight: 85.8 kg

DRUGS (1)
  1. MOXIFLOXACIN [Suspect]
     Dosage: EVERY DAY
     Route: 042
     Dates: start: 20120510, end: 20120510

REACTIONS (2)
  - Urticaria [None]
  - Anaphylactic reaction [None]
